FAERS Safety Report 9345866 (Version 2)
Quarter: 2013Q2

REPORT INFORMATION
  Report Type: Spontaneous
  Country: VE (occurrence: VE)
  Receive Date: 20130613
  Receipt Date: 20130625
  Transmission Date: 20140414
  Serious: Yes (Other)
  Sender: FDA-Public Use
  Company Number: VE-PFIZER INC-2013178050

PATIENT
  Age: 60 Year
  Sex: Male

DRUGS (1)
  1. LIPITOR [Suspect]
     Indication: CATHETER PLACEMENT
     Dosage: 40 MG, ONCE DAILY
     Route: 048

REACTIONS (4)
  - Gun shot wound [Recovered/Resolved]
  - Traumatic liver injury [Not Recovered/Not Resolved]
  - Gastrointestinal injury [Not Recovered/Not Resolved]
  - Pancreatic injury [Not Recovered/Not Resolved]
